FAERS Safety Report 9280119 (Version 1)
Quarter: 2013Q2

REPORT INFORMATION
  Report Type: Spontaneous
  Country: US (occurrence: None)
  Receive Date: 20130507
  Receipt Date: 20130507
  Transmission Date: 20140414
  Serious: No
  Sender: FDA-Public Use
  Company Number: None

PATIENT
  Age: 65 Year
  Sex: 0
  Weight: 120.2 kg

DRUGS (1)
  1. TERBINAFINE HCL [Suspect]
     Indication: ONYCHOMYCOSIS
     Dosage: ONE EVERY DAY
     Route: 048
     Dates: start: 20130108, end: 20130409

REACTIONS (2)
  - Drug ineffective [None]
  - Alopecia [None]
